FAERS Safety Report 14405483 (Version 3)
Quarter: 2018Q1

REPORT INFORMATION
  Report Type: Report from Study
  Country: US (occurrence: US)
  Receive Date: 20180118
  Receipt Date: 20180307
  Transmission Date: 20180509
  Serious: Yes (Other)
  Sender: FDA-Public Use
  Company Number: US-AMGEN-USASL2017184259

PATIENT
  Age: 71 Year
  Sex: Female

DRUGS (1)
  1. REPATHA [Suspect]
     Active Substance: EVOLOCUMAB
     Indication: HYPERCHOLESTEROLAEMIA
     Dosage: 140 MG/ML, Q2WK
     Route: 058
     Dates: start: 2017

REACTIONS (12)
  - Hypertension [Recovered/Resolved]
  - Blood urea increased [Unknown]
  - Nausea [Unknown]
  - Pneumonia [Recovering/Resolving]
  - Lethargy [Recovering/Resolving]
  - Malaise [Unknown]
  - Hypotension [Recovered/Resolved]
  - Feeling abnormal [Unknown]
  - Blood creatinine increased [Unknown]
  - Blood sodium decreased [Unknown]
  - Arthralgia [Recovering/Resolving]
  - Blood calcium increased [Unknown]

NARRATIVE: CASE EVENT DATE: 2017
